FAERS Safety Report 15846257 (Version 1)
Quarter: 2019Q1

REPORT INFORMATION
  Report Type: Spontaneous
  Country: GB (occurrence: GB)
  Receive Date: 20190120
  Receipt Date: 20190120
  Transmission Date: 20190417
  Serious: Yes (Hospitalization, Other)
  Sender: FDA-Public Use
  Company Number: PHHY2019GB007279

PATIENT
  Age: 53 Year
  Sex: Female

DRUGS (5)
  1. DOLUTEGRAVIR [Concomitant]
     Active Substance: DOLUTEGRAVIR
     Indication: HIV INFECTION
     Route: 065
  2. TRIAMCINOLONE ACETONIDE. [Suspect]
     Active Substance: TRIAMCINOLONE ACETONIDE
     Dosage: 40 MG, UNK INJECTED IN THE REGION OF THE LEFT GREATER TROCHANTERIC BURSA
     Route: 065
  3. COBICISTAT [Suspect]
     Active Substance: COBICISTAT
     Indication: HIV INFECTION
     Route: 065
  4. DARUNAVIR [Interacting]
     Active Substance: DARUNAVIR
     Indication: HIV INFECTION
     Route: 065
  5. BUPIVACAINE. [Concomitant]
     Active Substance: BUPIVACAINE
     Indication: BURSITIS
     Dosage: 40 MG OF TRIAMCINOLONE ACETONIDE (MIXED WITH 5 ML 0.5% BUPIVACAINE WAS INJECTED IN THE REGION OF THE
     Route: 065

REACTIONS (6)
  - Drug clearance decreased [Recovered/Resolved]
  - Drug interaction [Recovered/Resolved]
  - Cushing^s syndrome [Recovered/Resolved]
  - Hypovolaemia [Recovered/Resolved]
  - Urine output decreased [Recovered/Resolved]
  - Adrenal insufficiency [Recovered/Resolved]
